FAERS Safety Report 12185598 (Version 1)
Quarter: 2016Q1

REPORT INFORMATION
  Report Type: Spontaneous
  Country: US (occurrence: US)
  Receive Date: 20160316
  Receipt Date: 20160316
  Transmission Date: 20160526
  Serious: No
  Sender: FDA-Public Use
  Company Number: US-WARNER CHILCOTT, LLC-1049211

PATIENT
  Age: 72 Year
  Sex: Female

DRUGS (1)
  1. ESTRACE [Suspect]
     Active Substance: ESTRADIOL
     Indication: ATROPHIC VULVOVAGINITIS
     Route: 067

REACTIONS (3)
  - Product use issue [Unknown]
  - Vaginal haemorrhage [Unknown]
  - Vulvovaginal discomfort [None]

NARRATIVE: CASE EVENT DATE: 2014
